FAERS Safety Report 6446359-5 (Version None)
Quarter: 2009Q4

REPORT INFORMATION
  Report Type: 
  Country: None (occurrence: None)
  Receive Date: 20091119
  Receipt Date: 20091111
  Transmission Date: 20100525
  Serious: Yes (Hospitalization, Other)
  Sender: FDA-Public Use
  Company Number: US-ASTRAZENECA-2009SE25930

PATIENT
  Age: 85 Year
  Sex: Female

DRUGS (8)
  1. SYMBICORT [Suspect]
     Indication: DYSPNOEA
     Dosage: 640 MCG
     Route: 055
     Dates: start: 20080801, end: 20091001
  2. FUROSIMIDE [Concomitant]
  3. LOVASTATIN [Concomitant]
  4. NORVASC [Concomitant]
  5. AMBIEN [Concomitant]
  6. ASPIRIN [Concomitant]
  7. ZANTAC [Concomitant]
  8. REQUIT [Concomitant]

REACTIONS (3)
  - CARDIAC FAILURE CONGESTIVE [None]
  - HEADACHE [None]
  - SYNCOPE [None]
